FAERS Safety Report 5724724-9 (Version None)
Quarter: 2008Q2

REPORT INFORMATION
  Report Type: 
  Country: None (occurrence: None)
  Receive Date: 20080428
  Receipt Date: 20080415
  Transmission Date: 20081010
  Serious: Yes (Hospitalization)
  Sender: FDA-Public Use
  Company Number: DSA_31748_2008

PATIENT
  Sex: Female

DRUGS (3)
  1. LORAZEPAM [Suspect]
     Dosage: 5 MG 1X  NOT THE PRESCRIBED AMOUNT ORAL
     Route: 048
     Dates: start: 20080415, end: 20080415
  2. TRUXAL /00012102/ (TRUXAL  CHLORPROTHIXENE HYDROCHLORIDE) [Suspect]
     Dosage: 300 MG 1X NOT PRESCRIBED AMOUNT ORAL
     Route: 048
     Dates: start: 20080415, end: 20080415
  3. ZOPLICON (ZOPLICON) [Suspect]
     Dosage: 75 MG 1X NOT THE PRESCRIBED AMOUNT ORAL
     Route: 048
     Dates: start: 20080415, end: 20080415

REACTIONS (4)
  - DEPRESSED LEVEL OF CONSCIOUSNESS [None]
  - GASTROINTESTINAL SOUNDS ABNORMAL [None]
  - MULTIPLE DRUG OVERDOSE INTENTIONAL [None]
  - SUICIDE ATTEMPT [None]
